FAERS Safety Report 21098864 (Version 1)
Quarter: 2022Q3

REPORT INFORMATION
  Report Type: Spontaneous
  Country: US (occurrence: None)
  Receive Date: 20220719
  Receipt Date: 20220719
  Transmission Date: 20221026
  Serious: Yes (Hospitalization)
  Sender: FDA-Public Use
  Company Number: None

PATIENT
  Age: 84 Year
  Sex: Male
  Weight: 79.38 kg

DRUGS (5)
  1. SUNITINIB [Suspect]
     Active Substance: SUNITINIB
     Indication: Renal cancer
     Dosage: OTHER FREQUENCY : 14D OF 21 DAYS;?
     Route: 048
     Dates: start: 20211130
  2. CANNABIDIOL [Concomitant]
     Active Substance: CANNABIDIOL
  3. METOPROLOL [Concomitant]
     Active Substance: METOPROLOL
  4. MIDODRINE [Concomitant]
     Active Substance: MIDODRINE
  5. XANAX [Concomitant]
     Active Substance: ALPRAZOLAM

REACTIONS (1)
  - Hospitalisation [None]
